FAERS Safety Report 25330510 (Version 1)
Quarter: 2025Q2

REPORT INFORMATION
  Report Type: Spontaneous
  Country: US (occurrence: None)
  Receive Date: 20250518
  Receipt Date: 20250518
  Transmission Date: 20250717
  Serious: Yes (Disabling)
  Sender: FDA-CTU
  Company Number: None

PATIENT
  Age: 26 Year
  Sex: Female

DRUGS (1)
  1. PAROXETINE [Suspect]
     Active Substance: PAROXETINE

REACTIONS (14)
  - Withdrawal syndrome [None]
  - Tinnitus [None]
  - Visual impairment [None]
  - Dizziness [None]
  - Fatigue [None]
  - Pain [None]
  - Headache [None]
  - Neuralgia [None]
  - Photosensitivity reaction [None]
  - Histamine intolerance [None]
  - Skin burning sensation [None]
  - Impaired quality of life [None]
  - Disability [None]
  - Dyspepsia [None]

NARRATIVE: CASE EVENT DATE: 20210801
